FAERS Safety Report 5696129-0 (Version None)
Quarter: 2008Q2

REPORT INFORMATION
  Report Type: 
  Country: None (occurrence: None)
  Receive Date: 20080407
  Receipt Date: 20080325
  Transmission Date: 20081010
  Serious: Yes (Hospitalization)
  Sender: FDA-Public Use
  Company Number: FR-ROCHE-555468

PATIENT
  Sex: Female

DRUGS (13)
  1. RIVOTRIL [Suspect]
     Indication: DRUG USE FOR UNKNOWN INDICATION
     Route: 048
  2. PARIET [Suspect]
     Indication: DRUG USE FOR UNKNOWN INDICATION
     Route: 048
  3. DEPAKENE [Suspect]
     Indication: DRUG USE FOR UNKNOWN INDICATION
     Route: 048
     Dates: start: 20050325
  4. DEPAKENE [Suspect]
     Route: 048
     Dates: start: 20050325
  5. CODOLIPRANE [Suspect]
     Indication: FIBROMYALGIA
     Route: 048
  6. CODOLIPRANE [Suspect]
     Route: 048
  7. MONOALGIC [Suspect]
     Indication: FIBROMYALGIA
     Route: 048
  8. PROFENID [Suspect]
     Indication: FIBROMYALGIA
     Route: 048
     Dates: end: 20080221
  9. CYMBALTA [Suspect]
     Indication: DEPRESSION
     Route: 048
     Dates: start: 20080115
  10. PANOS [Concomitant]
  11. LEVOTHYROXINE SODIUM [Concomitant]
  12. TRANSIPEG [Concomitant]
  13. TRANSIPEG [Concomitant]

REACTIONS (2)
  - CHOLESTASIS [None]
  - CYTOLYTIC HEPATITIS [None]
